FAERS Safety Report 6233897-3 (Version None)
Quarter: 2009Q2

REPORT INFORMATION
  Report Type: 
  Country: None (occurrence: None)
  Receive Date: 20090618
  Receipt Date: 20090608
  Transmission Date: 20091009
  Serious: Yes (Other)
  Sender: FDA-Public Use
  Company Number: ES-PFIZER INC-2009218164

PATIENT
  Age: 69 Year

DRUGS (5)
  1. NIFEDIPINE [Suspect]
  2. PIPERACILLIN SODIUM AND TAZOBACTAM SODIUM [Concomitant]
  3. DOXAZOSIN [Concomitant]
  4. IRBESARTAN [Concomitant]
  5. HEPARIN-FRACTION [Suspect]

REACTIONS (1)
  - ACUTE GENERALISED EXANTHEMATOUS PUSTULOSIS [None]
